FAERS Safety Report 8263997-8 (Version None)
Quarter: 2012Q2

REPORT INFORMATION
  Report Type: 
  Country: None (occurrence: None)
  Receive Date: 20120406
  Receipt Date: 20120402
  Transmission Date: 20120825
  Serious: No
  Sender: FDA-Public Use
  Company Number: US-BIOGENIDEC-2012BI011524

PATIENT
  Sex: Female

DRUGS (2)
  1. AVONEX [Suspect]
     Indication: MULTIPLE SCLEROSIS
     Route: 030
     Dates: start: 20060101
  2. A ^SISTER DRUG TO MECLIZINE^ [Concomitant]
     Indication: DIZZINESS

REACTIONS (8)
  - PAIN IN EXTREMITY [None]
  - SCIATICA [None]
  - DIZZINESS [None]
  - GOITRE [None]
  - HYPOTHYROIDISM [None]
  - OEDEMA PERIPHERAL [None]
  - BENIGN NEOPLASM [None]
  - OPTIC NEURITIS [None]
